FAERS Safety Report 9206289 (Version 1)
Quarter: 2013Q1

REPORT INFORMATION
  Report Type: Spontaneous
  Country: US (occurrence: None)
  Receive Date: 20120709
  Receipt Date: 20120709
  Transmission Date: 20140127
  Serious: Yes (Other)
  Sender: FDA-Public Use
  Company Number: PHHY2011US68051

PATIENT
  Age: 49 Year
  Sex: Male

DRUGS (1)
  1. GLEEVEC (IMATINIB) UNKNOWN [Suspect]
     Indication: CHRONIC MYELOID LEUKAEMIA
     Route: 048
     Dates: start: 200712, end: 201107

REACTIONS (2)
  - Chronic myeloid leukaemia [None]
  - Blast crisis in myelogenous leukaemia [None]
